FAERS Safety Report 12649109 (Version 1)
Quarter: 2016Q3

REPORT INFORMATION
  Report Type: Report from Study
  Country: US (occurrence: US)
  Receive Date: 20160812
  Receipt Date: 20160812
  Transmission Date: 20161109
  Serious: Yes (Disabling)
  Sender: FDA-Public Use
  Company Number: US-009507513-1608USA006966

PATIENT
  Sex: Female

DRUGS (2)
  1. PEMBROLIZUMAB. [Suspect]
     Active Substance: PEMBROLIZUMAB
     Indication: COLON CANCER STAGE III
     Dosage: UNK, QOW (EVERY TWO WEEKS)
  2. PEMBROLIZUMAB. [Suspect]
     Active Substance: PEMBROLIZUMAB
     Indication: GASTRIC CANCER STAGE IV

REACTIONS (2)
  - Anxiety [Unknown]
  - Off label use [Unknown]
